FAERS Safety Report 12913328 (Version 2)
Quarter: 2016Q4

REPORT INFORMATION
  Report Type: Spontaneous
  Country: TR (occurrence: TR)
  Receive Date: 20161104
  Receipt Date: 20161111
  Transmission Date: 20170207
  Serious: Yes (Death, Hospitalization)
  Sender: FDA-Public Use
  Company Number: PHHY2016TR150599

PATIENT
  Age: 40 Year
  Sex: Female

DRUGS (1)
  1. DICLOFENAC [Suspect]
     Active Substance: DICLOFENAC
     Indication: EAR PAIN
     Dosage: UNK
     Route: 030

REACTIONS (22)
  - Rhabdomyolysis [Fatal]
  - Sepsis [Fatal]
  - Erythema [Fatal]
  - Bacterial disease carrier [Unknown]
  - Leukocytosis [Fatal]
  - Skin necrosis [Fatal]
  - Oliguria [Fatal]
  - Respiratory distress [Fatal]
  - Multiple organ dysfunction syndrome [Fatal]
  - Respiratory failure [Fatal]
  - Dermatitis [Fatal]
  - Acute kidney injury [Fatal]
  - Thrombophlebitis superficial [Unknown]
  - Embolia cutis medicamentosa [Fatal]
  - Oedema peripheral [Fatal]
  - Blister [Fatal]
  - Tachycardia [Fatal]
  - Ecchymosis [Fatal]
  - Intestinal haemorrhage [Fatal]
  - Acute respiratory distress syndrome [Fatal]
  - Injection site swelling [Unknown]
  - Injection site pain [Unknown]
